FAERS Safety Report 7595176-1 (Version None)
Quarter: 2011Q3

REPORT INFORMATION
  Report Type: 
  Country: None (occurrence: None)
  Receive Date: 20110707
  Receipt Date: 20110628
  Transmission Date: 20111222
  Serious: Yes (Other)
  Sender: FDA-Public Use
  Company Number: JP-JNJFOC-20090705549

PATIENT
  Sex: Male

DRUGS (1)
  1. DORIPENEM MONOHYDRATE [Suspect]
     Indication: EPIGLOTTITIS
     Route: 041
     Dates: start: 20080510, end: 20080513

REACTIONS (1)
  - ACUTE GENERALISED EXANTHEMATOUS PUSTULOSIS [None]
